FAERS Safety Report 8552970-8 (Version None)
Quarter: 2012Q3

REPORT INFORMATION
  Report Type: 
  Country: None (occurrence: None)
  Receive Date: 20120731
  Receipt Date: 20120720
  Transmission Date: 20120928
  Serious: Yes (Other)
  Sender: FDA-Public Use
  Company Number: US-ASTELLAS-2012US006353

PATIENT
  Age: 63 Year
  Sex: Male

DRUGS (1)
  1. LEXISCAN [Suspect]
     Indication: SCAN MYOCARDIAL PERFUSION
     Dosage: UNK
     Route: 042
     Dates: start: 20120719, end: 20120719

REACTIONS (4)
  - DYSPHONIA [None]
  - HEMIPARESIS [None]
  - ISCHAEMIC STROKE [None]
  - MIGRAINE [None]
